FAERS Safety Report 17469426 (Version 2)
Quarter: 2020Q1

REPORT INFORMATION
  Report Type: Spontaneous
  Country: CZ (occurrence: CZ)
  Receive Date: 20200227
  Receipt Date: 20200228
  Transmission Date: 20200409
  Serious: Yes (Death, Life-Threatening, Hospitalization, Other)
  Sender: FDA-Public Use
  Company Number: CZ-MYLANLABS-2020M1021284

PATIENT
  Sex: Male

DRUGS (18)
  1. ESCITALOPRAM [Suspect]
     Active Substance: ESCITALOPRAM OXALATE
     Dosage: 10 MILLIGRAM, QD
     Route: 048
  2. KVENTIAX [Suspect]
     Active Substance: QUETIAPINE FUMARATE
     Indication: PRODUCT USED FOR UNKNOWN INDICATION
     Dosage: 2 DF, QD
  3. KVENTIAX [Suspect]
     Active Substance: QUETIAPINE FUMARATE
     Dosage: 100 MILLIGRAM, QOD
     Route: 048
  4. DANTROLEN [Concomitant]
     Active Substance: DANTROLENE SODIUM
     Dosage: 1 DOSAGE FORM
     Route: 030
  5. HALOPERIDOL. [Suspect]
     Active Substance: HALOPERIDOL
     Dosage: 10 DF, TID
  6. HALOPERIDOL. [Suspect]
     Active Substance: HALOPERIDOL
     Dosage: 5 GTT DROPS, QOD
     Route: 048
  7. NOVALGIN (METAMIZOLE SODIUM) [Concomitant]
     Active Substance: METAMIZOLE SODIUM
     Dosage: 500 MILLIGRAM, Q3D
     Route: 048
  8. TIAPRIDAL [Suspect]
     Active Substance: TIAPRIDE HYDROCHLORIDE
     Indication: ALCOHOLISM
     Dosage: 1 DF, QD
  9. HALOPERIDOL. [Suspect]
     Active Substance: HALOPERIDOL
     Indication: PRODUCT USED FOR UNKNOWN INDICATION
     Dosage: 20 DOSAGE FORM, Q8H (20 UNK)
  10. TIAPRIDAL [Suspect]
     Active Substance: TIAPRIDE HYDROCHLORIDE
     Dosage: 100 MILLIGRAM, Q8D
     Route: 048
  11. ESCITALOPRAM [Suspect]
     Active Substance: ESCITALOPRAM OXALATE
     Indication: ALCOHOLISM
     Dosage: 1 UNK
  12. ESCITALOPRAM [Suspect]
     Active Substance: ESCITALOPRAM OXALATE
     Indication: DELIRIUM
     Dosage: 1 DF, QD
  13. TIAPRIDAL [Suspect]
     Active Substance: TIAPRIDE HYDROCHLORIDE
     Indication: DELIRIUM
     Dosage: 4 DF, QID
  14. NOVALGIN (METAMIZOLE SODIUM) [Concomitant]
     Active Substance: METAMIZOLE SODIUM
     Dosage: 3 DF, TID
  15. VASOCARDIN [Concomitant]
     Active Substance: METOPROLOL
     Dosage: 50 MILLIGRAM, QOD
     Route: 048
  16. HALOPERIDOL. [Suspect]
     Active Substance: HALOPERIDOL
     Dosage: 10 GTT DROPS, QOD
     Route: 048
  17. TIAPRIDAL [Suspect]
     Active Substance: TIAPRIDE HYDROCHLORIDE
     Dosage: 100 MILLIGRAM, QD
     Route: 048
  18. AMANTADINE. [Concomitant]
     Active Substance: AMANTADINE HYDROCHLORIDE
     Dosage: UNK

REACTIONS (15)
  - Altered state of consciousness [Fatal]
  - Disease progression [Fatal]
  - Apathy [Fatal]
  - Hypertonia [Fatal]
  - Psychomotor hyperactivity [Fatal]
  - Myoglobin blood increased [Fatal]
  - Renal impairment [Fatal]
  - Tremor [Fatal]
  - Pyrexia [Fatal]
  - Muscle rigidity [Fatal]
  - Tachycardia [Fatal]
  - Hypertension [Fatal]
  - Dehydration [Fatal]
  - Neuroleptic malignant syndrome [Fatal]
  - Blood creatinine increased [Fatal]
